FAERS Safety Report 6402896-0 (Version None)
Quarter: 2009Q4

REPORT INFORMATION
  Report Type: 
  Country: None (occurrence: None)
  Receive Date: 20091014
  Receipt Date: 20091014
  Transmission Date: 20100525
  Serious: Yes (Hospitalization)
  Sender: FDA-Public Use
  Company Number: None

PATIENT
  Age: 66 Year
  Sex: Male
  Weight: 102.3 kg

DRUGS (1)
  1. FUROSEMIDE [Suspect]
     Indication: DIURETIC THERAPY
     Dosage: 40 MG EVERY DAY PO
     Route: 048
     Dates: start: 20030430, end: 20091007

REACTIONS (1)
  - ORTHOSTATIC HYPOTENSION [None]
